FAERS Safety Report 19711985 (Version 3)
Quarter: 2021Q3

REPORT INFORMATION
  Report Type: Spontaneous
  Country: US (occurrence: US)
  Receive Date: 20210817
  Receipt Date: 20210906
  Transmission Date: 20211014
  Serious: No
  Sender: FDA-Public Use
  Company Number: US-BRISTOL-MYERS SQUIBB COMPANY-BMS-2021-081624

PATIENT
  Age: 83 Year
  Sex: Male
  Weight: 94.35 kg

DRUGS (1)
  1. ELIQUIS [Suspect]
     Active Substance: APIXABAN
     Indication: STENT PLACEMENT
     Dosage: 5 MILLIGRAM, BID
     Route: 048

REACTIONS (2)
  - Intentional product use issue [Unknown]
  - Product storage error [Unknown]
